FAERS Safety Report 8615616-6 (Version None)
Quarter: 2012Q3

REPORT INFORMATION
  Report Type: 
  Country: None (occurrence: None)
  Receive Date: 20120823
  Receipt Date: 20120813
  Transmission Date: 20120928
  Serious: Yes (Hospitalization)
  Sender: FDA-Public Use
  Company Number: US-ELI_LILLY_AND_COMPANY-US201208004422

PATIENT
  Sex: Female

DRUGS (2)
  1. FORTEO [Suspect]
     Indication: OSTEOPOROSIS
     Dosage: 20 UG, QD
     Dates: start: 20120301
  2. FORTEO [Suspect]
     Dosage: 20 UG, QD

REACTIONS (6)
  - SWELLING [None]
  - URTICARIA [None]
  - CONTUSION [None]
  - VOMITING [None]
  - RASH [None]
  - CHOLECYSTECTOMY [None]
